FAERS Safety Report 15014724 (Version 1)
Quarter: 2018Q2

REPORT INFORMATION
  Report Type: Spontaneous
  Country: IN (occurrence: IN)
  Receive Date: 20180615
  Receipt Date: 20180615
  Transmission Date: 20180711
  Serious: Yes (Other)
  Sender: FDA-Public Use
  Company Number: IN-CIPLA (EU) LIMITED-2018IN19147

PATIENT

DRUGS (2)
  1. GEMCITABINE [Suspect]
     Active Substance: GEMCITABINE\GEMCITABINE HYDROCHLORIDE
     Indication: MIXED ADENONEUROENDOCRINE CARCINOMA
     Dosage: UNK, 6 CYCLES
     Route: 065
  2. OXALIPLATIN. [Suspect]
     Active Substance: OXALIPLATIN
     Indication: MIXED ADENONEUROENDOCRINE CARCINOMA
     Dosage: UNK, 6 CYCLES
     Route: 065

REACTIONS (1)
  - Neoplasm recurrence [Unknown]
